FAERS Safety Report 7543994-8 (Version None)
Quarter: 2011Q2

REPORT INFORMATION
  Report Type: 
  Country: None (occurrence: None)
  Receive Date: 20110613
  Receipt Date: 20050630
  Transmission Date: 20111010
  Serious: Yes (Hospitalization, Other)
  Sender: FDA-Public Use
  Company Number: PHFR2005GB00894

PATIENT
  Sex: Male

DRUGS (8)
  1. CARBAMAZEPINE [Concomitant]
     Route: 065
  2. THYMINE [Concomitant]
  3. VALPROATE SODIUM [Concomitant]
     Route: 065
  4. CLOZAPINE [Suspect]
     Indication: SCHIZOPHRENIA
     Route: 048
     Dates: start: 20020212
  5. SPIRONOLACTONE [Concomitant]
     Route: 065
  6. NORFLOXACIN [Concomitant]
     Route: 065
  7. PHENYTOIN [Concomitant]
     Route: 065
  8. RANITIDINE [Concomitant]
     Route: 065

REACTIONS (9)
  - CEREBRAL HAEMORRHAGE [None]
  - HEPATITIS C [None]
  - LOSS OF CONSCIOUSNESS [None]
  - ABNORMAL CLOTTING FACTOR [None]
  - LIVER FUNCTION TEST ABNORMAL [None]
  - HAEMATOMA [None]
  - CONVULSION [None]
  - COMA [None]
  - HYDROCEPHALUS [None]
